FAERS Safety Report 8524908-0 (Version None)
Quarter: 2012Q3

REPORT INFORMATION
  Report Type: 
  Country: None (occurrence: None)
  Receive Date: 20120720
  Receipt Date: 20120711
  Transmission Date: 20120928
  Serious: Yes (Other)
  Sender: FDA-Public Use
  Company Number: IT-JNJFOC-20120705560

PATIENT
  Age: 82 Year
  Sex: Female

DRUGS (1)
  1. RISPERDAL [Suspect]
     Indication: DRUG DIVERSION
     Route: 048
     Dates: start: 20120711, end: 20120711

REACTIONS (5)
  - DRUG DIVERSION [None]
  - CONFUSIONAL STATE [None]
  - HYPOTENSION [None]
  - PRESYNCOPE [None]
  - SOPOR [None]
